FAERS Safety Report 10147265 (Version 1)
Quarter: 2014Q2

REPORT INFORMATION
  Report Type: Spontaneous
  Country: US (occurrence: US)
  Receive Date: 20140501
  Receipt Date: 20140501
  Transmission Date: 20141212
  Serious: Yes (Other)
  Sender: FDA-Public Use
  Company Number: US-PFIZER INC-2014120373

PATIENT
  Age: 56 Year
  Sex: Female
  Weight: 99.77 kg

DRUGS (1)
  1. LYRICA [Suspect]
     Indication: FIBROMYALGIA
     Dosage: 75 MG, 2X/DAY
     Dates: start: 201404, end: 20140423

REACTIONS (4)
  - Dyspnoea [Unknown]
  - Throat tightness [Unknown]
  - Nausea [Unknown]
  - Headache [Unknown]
